FAERS Safety Report 21468591 (Version 1)
Quarter: 2022Q4

REPORT INFORMATION
  Report Type: Spontaneous
  Country: US (occurrence: US)
  Receive Date: 20221017
  Receipt Date: 20221017
  Transmission Date: 20230112
  Serious: Yes (Other)
  Sender: FDA-Public Use
  Company Number: US-JNJFOC-20221019673

PATIENT
  Age: 43 Year
  Sex: Female
  Weight: 69.5 kg

DRUGS (2)
  1. OPSUMIT [Suspect]
     Active Substance: MACITENTAN
     Indication: Product used for unknown indication
     Route: 048
     Dates: end: 202209
  2. TREPROSTINIL SODIUM [Suspect]
     Active Substance: TREPROSTINIL SODIUM
     Indication: Pulmonary arterial hypertension
     Dosage: CONCENTRATION 10.0 MG/ML
     Route: 058
     Dates: start: 20190919

REACTIONS (2)
  - Hepatic enzyme increased [Unknown]
  - Palpitations [Unknown]
